FAERS Safety Report 7904618 (Version 2)
Quarter: 2013Q1

REPORT INFORMATION
  Report Type: Spontaneous
  Country: VE (occurrence: VE)
  Receive Date: 20110419
  Receipt Date: 20130215
  Transmission Date: 20140127
  Serious: Yes (Death)
  Sender: FDA-Public Use
  Company Number: PHHY2011VE31686

PATIENT
  Age: 84 Year
  Sex: Female

DRUGS (2)
  1. DIOVAN [Suspect]
     Indication: HYPERTENSION
     Dosage: 160 MG, DAILY
     Route: 048
  2. ASPIRINA [Concomitant]
     Dosage: 100 MG, DAILY
     Route: 048

REACTIONS (1)
  - Respiratory arrest [Fatal]
